FAERS Safety Report 8803013 (Version 1)
Quarter: 2012Q4

REPORT INFORMATION
  Report Type: 
  Country: FR (occurrence: FR)
  Receive Date: 20120924
  Receipt Date: 20120924
  Transmission Date: 20130627
  Serious: Yes (Life-Threatening, Hospitalization)
  Sender: FDA-Public Use
  Company Number: FR-JNJFOC-20120905518

PATIENT
  Age: 44 Year
  Sex: Female

DRUGS (6)
  1. REMICADE [Suspect]
     Indication: COLITIS ULCERATIVE
     Dosage: 18th dose
     Route: 042
     Dates: start: 20120618
  2. REMICADE [Suspect]
     Indication: COLITIS ULCERATIVE
     Route: 042
  3. FLUINDIONE [Suspect]
     Indication: DEEP VEIN THROMBOSIS
     Route: 065
  4. PENTASA [Concomitant]
     Route: 065
  5. IMUREL [Concomitant]
     Route: 065
  6. LOVENOX [Concomitant]
     Indication: PROPHYLAXIS
     Route: 065

REACTIONS (5)
  - Rectal haemorrhage [Recovered/Resolved]
  - International normalised ratio increased [Recovered/Resolved]
  - Overdose [Recovered/Resolved]
  - Gastrointestinal haemorrhage [None]
  - Haemoglobin decreased [None]
